FAERS Safety Report 4924445-6 (Version None)
Quarter: 2006Q1

REPORT INFORMATION
  Report Type: 
  Country: None (occurrence: None)
  Receive Date: 20060221
  Receipt Date: 20060208
  Transmission Date: 20060701
  Serious: Yes (Other)
  Sender: FDA-Public Use
  Company Number: 2005160873

PATIENT
  Sex: Male
  Weight: 92.9874 kg

DRUGS (3)
  1. VIAGRA [Suspect]
     Indication: ERECTILE DYSFUNCTION
     Dosage: (50 MG)
     Dates: start: 20020101
  2. LOTREL [Concomitant]
  3. LIPITOR [Concomitant]

REACTIONS (3)
  - DRUG INEFFECTIVE [None]
  - HERNIA REPAIR [None]
  - PHARMACEUTICAL PRODUCT COMPLAINT [None]
